FAERS Safety Report 4485209-3 (Version None)
Quarter: 2004Q4

REPORT INFORMATION
  Report Type: 
  Country: None (occurrence: None)
  Receive Date: 20041026
  Receipt Date: 20040518
  Transmission Date: 20050328
  Serious: No
  Sender: FDA-Public Use
  Company Number: US-BRISTOL-MYERS SQUIBB COMPANY-12590717

PATIENT
  Age: 52 Year
  Sex: Male
  Weight: 126 kg

DRUGS (4)
  1. GLUCOPHAGE XR [Suspect]
     Indication: DIABETES MELLITUS NON-INSULIN-DEPENDENT
     Route: 048
     Dates: start: 19980101
  2. AVANDIA [Concomitant]
  3. LIPITOR [Concomitant]
  4. ALTACE [Concomitant]

REACTIONS (1)
  - BLOOD GLUCOSE INCREASED [None]
